FAERS Safety Report 19416460 (Version 1)
Quarter: 2021Q2

REPORT INFORMATION
  Report Type: Spontaneous
  Country: US (occurrence: US)
  Receive Date: 20210611
  Receipt Date: 20210611
  Transmission Date: 20210717
  Serious: Yes (Other)
  Sender: FDA-Public Use
  Company Number: None

PATIENT
  Age: 55 Year
  Sex: Male

DRUGS (1)
  1. PAPAVERINE / PHENTOLAMINE [Suspect]
     Active Substance: PAPAVERINE\PHENTOLAMINE
     Indication: ERECTILE DYSFUNCTION
     Dosage: ?          OTHER FREQUENCY:WEEKLY;?
     Route: 017
     Dates: start: 20210107

REACTIONS (2)
  - Incorrect dose administered [None]
  - Priapism [None]

NARRATIVE: CASE EVENT DATE: 20210604
